FAERS Safety Report 17916726 (Version 2)
Quarter: 2020Q3

REPORT INFORMATION
  Report Type: Spontaneous
  Country: US (occurrence: US)
  Receive Date: 20200619
  Receipt Date: 20200724
  Transmission Date: 20201103
  Serious: No
  Sender: FDA-Public Use
  Company Number: US-BAUSCH-BL-2020-017020

PATIENT
  Age: 62 Year
  Sex: Female
  Weight: 61.74 kg

DRUGS (2)
  1. RESTASIS [Concomitant]
     Active Substance: CYCLOSPORINE
     Indication: PRODUCT USED FOR UNKNOWN INDICATION
     Route: 047
  2. LACRISERT [Suspect]
     Active Substance: HYDROXYPROPYL CELLULOSE
     Indication: DRY EYE
     Dosage: 1 UNSPECIFIED UNIT, EACH EYE ONCE DAILY, END DATE: AROUND 3 MONTHS PRIOR
     Route: 047
     Dates: start: 201911, end: 202003

REACTIONS (3)
  - Therapy interrupted [Unknown]
  - Product supply issue [Unknown]
  - Dry eye [Not Recovered/Not Resolved]

NARRATIVE: CASE EVENT DATE: 202003
